FAERS Safety Report 8024867-3 (Version None)
Quarter: 2012Q1

REPORT INFORMATION
  Report Type: 
  Country: None (occurrence: None)
  Receive Date: 20120105
  Receipt Date: 20111228
  Transmission Date: 20120608
  Serious: Yes (Other)
  Sender: FDA-Public Use
  Company Number: CA-JNJFOC-20120100874

PATIENT
  Sex: Female

DRUGS (3)
  1. REMICADE [Suspect]
     Indication: CROHN'S DISEASE
     Route: 042
     Dates: start: 20090408
  2. REMICADE [Suspect]
     Route: 042
     Dates: start: 20111115
  3. ANTIBIOTICS [Concomitant]

REACTIONS (3)
  - FEMALE GENITAL TRACT FISTULA [None]
  - SINUSITIS [None]
  - ECZEMA [None]
